FAERS Safety Report 10465904 (Version 2)
Quarter: 2014Q3

REPORT INFORMATION
  Report Type: Spontaneous
  Country: US (occurrence: US)
  Receive Date: 20140922
  Receipt Date: 20140922
  Transmission Date: 20150326
  Serious: Yes (Death, Hospitalization, Other)
  Sender: FDA-Public Use
  Company Number: US-ROCHE-GNE256192

PATIENT
  Age: 68 Year
  Sex: Male

DRUGS (5)
  1. TESTOSTERONE. [Concomitant]
     Active Substance: TESTOSTERONE
     Indication: DRUG THERAPY
     Dosage: 200 MG, 1/WEEK
     Route: 065
  2. DEHYDROEPIANDROSTERONE [Concomitant]
     Indication: DRUG THERAPY
     Dosage: 100 MG, QD
     Route: 065
  3. PREDNISONE. [Concomitant]
     Active Substance: PREDNISONE
     Indication: PRODUCT USED FOR UNKNOWN INDICATION
     Dosage: 6 MG, QD
     Route: 065
  4. MESALAMINE. [Concomitant]
     Active Substance: MESALAMINE
     Indication: PRODUCT USED FOR UNKNOWN INDICATION
     Route: 065
  5. NUTROPIN [Suspect]
     Active Substance: SOMATROPIN
     Indication: DRUG THERAPY
     Dosage: 0.6 MG BID
     Route: 058

REACTIONS (1)
  - Colon cancer metastatic [Fatal]
